FAERS Safety Report 18510642 (Version 1)
Quarter: 2020Q4

REPORT INFORMATION
  Report Type: Spontaneous
  Country: US (occurrence: US)
  Receive Date: 20201116
  Receipt Date: 20201116
  Transmission Date: 20210114
  Serious: Yes (Death)
  Sender: FDA-Public Use
  Company Number: None

PATIENT
  Age: 94 Year
  Sex: Female

DRUGS (10)
  1. PROMACT 12.5MG/D; [Concomitant]
  2. K-TAB 10MEQ/D; [Concomitant]
  3. VITAMIN D3; [Concomitant]
  4. DILTIAZEM XT 120MG/D; [Concomitant]
  5. FUROSEMIDE 20MG (3 TABS/D) [Concomitant]
  6. OXYGEN INTRANASAL [Concomitant]
  7. DIGOXIN 125MCG/D; [Concomitant]
  8. PEG FOR CONSTIPATION; [Concomitant]
  9. PROMACTA [Suspect]
     Active Substance: ELTROMBOPAG OLAMINE
     Indication: IMMUNE THROMBOCYTOPENIA
     Route: 048
     Dates: start: 20181205
  10. MVI; [Concomitant]

REACTIONS (1)
  - Death [None]

NARRATIVE: CASE EVENT DATE: 20200108
